FAERS Safety Report 6210186-4 (Version None)
Quarter: 2009Q2

REPORT INFORMATION
  Report Type: 
  Country: None (occurrence: None)
  Receive Date: 20090601
  Receipt Date: 20090519
  Transmission Date: 20091009
  Serious: Yes (Other)
  Sender: FDA-Public Use
  Company Number: RO-JNJFOC-20090505339

PATIENT
  Age: 28 Year
  Sex: Male

DRUGS (5)
  1. INFLIXIMAB [Suspect]
     Indication: CROHN'S DISEASE
     Dosage: 2 DOSES SCHEDULED AT TWO WEEK INTERVALS
     Route: 042
  2. CORTICOSTEROIDS [Suspect]
     Indication: CROHN'S DISEASE
  3. CIPROFLOXACIN [Concomitant]
     Indication: CROHN'S DISEASE
  4. SULFASALAZINE [Concomitant]
  5. PREDNISONE [Concomitant]

REACTIONS (3)
  - BONE TUBERCULOSIS [None]
  - ERYTHEMA [None]
  - JOINT SWELLING [None]
